FAERS Safety Report 13799597 (Version 1)
Quarter: 2017Q3

REPORT INFORMATION
  Report Type: Spontaneous
  Country: US (occurrence: US)
  Receive Date: 20170727
  Receipt Date: 20170727
  Transmission Date: 20171127
  Serious: Yes (Hospitalization)
  Sender: FDA-Public Use
  Company Number: None

PATIENT
  Age: 27 Year
  Sex: Male
  Weight: 75.9 kg

DRUGS (2)
  1. AZITHROMYCIN ANHYDROUS. [Suspect]
     Active Substance: AZITHROMYCIN ANHYDROUS
     Indication: PHARYNGITIS
     Route: 048
     Dates: start: 20170119, end: 20170119
  2. DEXTROMETHORPHAN/GUAIFENESIN [Suspect]
     Active Substance: DEXTROMETHORPHAN\GUAIFENESIN
     Indication: PHARYNGITIS
     Dosage: DOSE - 5-10 ML
     Route: 058
     Dates: start: 20170119, end: 20170119

REACTIONS (1)
  - Angioedema [None]

NARRATIVE: CASE EVENT DATE: 20170120
